FAERS Safety Report 10988819 (Version 2)
Quarter: 2015Q2

REPORT INFORMATION
  Report Type: Spontaneous
  Country: US (occurrence: US)
  Receive Date: 20150405
  Receipt Date: 20150525
  Transmission Date: 20150821
  Serious: No
  Sender: FDA-Public Use
  Company Number: US-JNJFOC-20140925803

PATIENT
  Age: 55 Year
  Sex: Female

DRUGS (2)
  1. INFLIXIMAB, RECOMBINANT [Suspect]
     Active Substance: INFLIXIMAB
     Indication: GRANULOMA SKIN
     Dosage: AT WEEK 0,2,6 AND EVERY 4 WEEK THEREAFTER
     Route: 042
  2. INFLIXIMAB, RECOMBINANT [Suspect]
     Active Substance: INFLIXIMAB
     Indication: IMMUNODEFICIENCY COMMON VARIABLE
     Dosage: AT WEEK 0,2,6 AND EVERY 4 WEEK THEREAFTER
     Route: 042

REACTIONS (2)
  - Therapeutic response unexpected [Recovered/Resolved]
  - Product use issue [Recovered/Resolved]
